FAERS Safety Report 6072600-7 (Version None)
Quarter: 2009Q1

REPORT INFORMATION
  Report Type: 
  Country: None (occurrence: None)
  Receive Date: 20090210
  Receipt Date: 20090205
  Transmission Date: 20090719
  Serious: Yes (Other)
  Sender: FDA-Public Use
  Company Number: US-ELI_LILLY_AND_COMPANY-US200809001598

PATIENT
  Sex: Male
  Weight: 83.9 kg

DRUGS (7)
  1. BYETTA [Suspect]
     Indication: TYPE 2 DIABETES MELLITUS
     Dosage: 5 UG, 2/D
     Route: 058
     Dates: start: 20050801, end: 20050901
  2. BYETTA [Suspect]
     Dosage: 10 UG, 2/D
     Route: 058
     Dates: start: 20050901, end: 20060901
  3. LISINOPRIL [Concomitant]
     Dates: start: 20020101, end: 20080101
  4. TOPROL-XL [Concomitant]
     Dates: start: 20020101, end: 20080101
  5. CRESTOR [Concomitant]
     Dates: start: 20040101
  6. ASPIRIN [Concomitant]
     Dates: start: 20020101
  7. ACTOS [Concomitant]
     Dates: start: 20030101

REACTIONS (2)
  - PANCREATITIS [None]
  - WEIGHT DECREASED [None]
